FAERS Safety Report 23241361 (Version 2)
Quarter: 2024Q1

REPORT INFORMATION
  Report Type: Spontaneous
  Country: IN (occurrence: IN)
  Receive Date: 20231129
  Receipt Date: 20240103
  Transmission Date: 20240410
  Serious: No
  Sender: FDA-Public Use
  Company Number: IN-PFIZER INC-PV202300192005

PATIENT
  Age: 75 Year
  Sex: Female
  Weight: 60.2 kg

DRUGS (4)
  1. LORLATINIB [Suspect]
     Active Substance: LORLATINIB
     Indication: Lung adenocarcinoma
     Dosage: 100 MG, 1X/DAY
     Route: 048
     Dates: start: 20231012
  2. ROSUVASTATIN CALCIUM [Concomitant]
     Active Substance: ROSUVASTATIN CALCIUM
     Dosage: 10 MG, 1X/DAY
  3. CALCIUM\CHOLECALCIFEROL [Concomitant]
     Active Substance: CALCIUM\CHOLECALCIFEROL
     Dosage: 1 DF, 1X/DAY
  4. MINERALS\VITAMINS [Concomitant]
     Active Substance: MINERALS\VITAMINS
     Dosage: UNK, 1X/DAY

REACTIONS (1)
  - Constipation [Unknown]
